FAERS Safety Report 6948396-0 (Version None)
Quarter: 2010Q3

REPORT INFORMATION
  Report Type: 
  Country: None (occurrence: None)
  Receive Date: 20100828
  Receipt Date: 20091103
  Transmission Date: 20110219
  Serious: No
  Sender: FDA-Public Use
  Company Number: US-ABBOTT-09P-163-0606708-00

PATIENT
  Sex: Female
  Weight: 62.652 kg

DRUGS (2)
  1. NIASPAN [Suspect]
     Indication: PRODUCT USED FOR UNKNOWN INDICATION
     Dates: start: 20091030, end: 20091115
  2. PRAVASTATIN [Concomitant]
     Indication: PRODUCT USED FOR UNKNOWN INDICATION

REACTIONS (6)
  - COUGH [None]
  - DIZZINESS [None]
  - DYSPNOEA EXERTIONAL [None]
  - HEART RATE INCREASED [None]
  - MIDDLE INSOMNIA [None]
  - MUSCLE SPASMS [None]
